FAERS Safety Report 9663344 (Version 1)
Quarter: 2013Q4

REPORT INFORMATION
  Report Type: Spontaneous
  Country: IT (occurrence: IT)
  Receive Date: 20131101
  Receipt Date: 20131101
  Transmission Date: 20140711
  Serious: Yes (Hospitalization)
  Sender: FDA-Public Use
  Company Number: IT-ASTRAZENECA-2013SE78434

PATIENT
  Age: 31463 Day
  Sex: Female

DRUGS (4)
  1. ZESTORETIC [Suspect]
     Indication: HYPERTENSION
     Dosage: 20MG+12,5MG, DAILY
     Route: 048
     Dates: start: 20080101, end: 20131007
  2. LASIX [Suspect]
     Indication: HYPERTENSION
     Route: 048
     Dates: start: 20080101, end: 20131007
  3. OMEPRAZOLE [Concomitant]
  4. CARDIOASPIRIN [Concomitant]

REACTIONS (3)
  - Hypocalcaemia [Recovered/Resolved]
  - Hypomagnesaemia [Recovered/Resolved]
  - Hypokalaemia [Recovered/Resolved]
